FAERS Safety Report 6601788-1 (Version None)
Quarter: 2010Q1

REPORT INFORMATION
  Report Type: 
  Country: None (occurrence: None)
  Receive Date: 20100225
  Receipt Date: 20100216
  Transmission Date: 20100710
  Serious: Yes (Hospitalization)
  Sender: FDA-Public Use
  Company Number: GXKR2010IT02031

PATIENT
  Sex: Male

DRUGS (2)
  1. AMOXICILLIN [Suspect]
     Indication: RESPIRATORY TRACT INFECTION
     Dosage: 2 G, QD
     Route: 048
     Dates: start: 20100205, end: 20100209
  2. TACHIPIRINA [Concomitant]
     Dosage: 1 G, QD
     Route: 048
     Dates: start: 20100205, end: 20100209

REACTIONS (6)
  - APHTHOUS STOMATITIS [None]
  - ERYTHEMA [None]
  - GINGIVITIS [None]
  - PERIODONTAL DISEASE [None]
  - RASH [None]
  - URTICARIA [None]
